FAERS Safety Report 4498942-4 (Version None)
Quarter: 2004Q4

REPORT INFORMATION
  Report Type: 
  Country: None (occurrence: None)
  Receive Date: 20041108
  Receipt Date: 20041102
  Transmission Date: 20050328
  Serious: Yes (Death, Other)
  Sender: FDA-Public Use
  Company Number: MAG-2004-0000306

PATIENT
  Age: 78 Year
  Sex: Female

DRUGS (18)
  1. OXYCODONE HCL CONTROLLED RELEASE TABLETS (OXYCODONE HYDROCHLORIDE) CR [Suspect]
     Indication: CANCER PAIN
     Dosage: SEE IMAGE
     Dates: start: 20040726, end: 20040802
  2. OXYCODONE HCL CONTROLLED RELEASE TABLETS (OXYCODONE HYDROCHLORIDE) CR [Suspect]
     Indication: CANCER PAIN
     Dosage: SEE IMAGE
     Dates: start: 20040802, end: 20040804
  3. OXYCODONE HCL CONTROLLED RELEASE TABLETS (OXYCODONE HYDROCHLORIDE) CR [Suspect]
     Indication: CANCER PAIN
     Dosage: SEE IMAGE
     Dates: start: 20040804, end: 20040826
  4. OXYCODONE HCL CONTROLLED RELEASE TABLETS (OXYCODONE HYDROCHLORIDE) CR [Suspect]
     Indication: CANCER PAIN
     Dosage: SEE IMAGE
     Dates: start: 20040826, end: 20040917
  5. OXYCODONE HCL CONTROLLED RELEASE TABLETS (OXYCODONE HYDROCHLORIDE) CR [Suspect]
     Indication: CANCER PAIN
     Dosage: SEE IMAGE
     Dates: start: 20040917, end: 20040921
  6. KADIAN ^KNOLL^ [Concomitant]
  7. VOLTAREN [Concomitant]
  8. MOBIC [Concomitant]
  9. GASTER (FAMOTIDINE) [Concomitant]
  10. FOIPAN (CAMOSTAT MESILATE) [Concomitant]
  11. NOVAMIN (PROCHLORPERAZINEC) [Concomitant]
  12. MAGNESIUM OXIDE (MAGNESIUM OXIDE) [Concomitant]
  13. MORPHIINE HYDROCLORIDE (MORPHINE HYDROCHLORIDE) [Concomitant]
  14. LENDORM [Concomitant]
  15. BETAMETHASONE [Concomitant]
  16. ROPION (FLURBIPROFEN AXETIL) [Concomitant]
  17. ALTAT (ROXATIDINE ACETATE HYDRCHLORIDE) [Concomitant]
  18. MORPHINE HYDROCHLORIDE (MORPHINE HYDROCHILORIDE) [Concomitant]

REACTIONS (14)
  - ANAEMIA [None]
  - ANXIETY [None]
  - DELIRIUM [None]
  - DYSPNOEA [None]
  - GLUCOSE URINE PRESENT [None]
  - HYPERGLYCAEMIA [None]
  - HYPOALBUMINAEMIA [None]
  - HYPOPROTEINAEMIA [None]
  - INSOMNIA [None]
  - LEUKOPENIA [None]
  - LIVER DISORDER [None]
  - MALNUTRITION [None]
  - PANCREATIC CARCINOMA [None]
  - THROMBOCYTOPENIA [None]
